FAERS Safety Report 9535810 (Version 3)
Quarter: 2013Q4

REPORT INFORMATION
  Report Type: Spontaneous
  Country: DE (occurrence: DE)
  Receive Date: 20130919
  Receipt Date: 20131031
  Transmission Date: 20140711
  Serious: Yes (Other)
  Sender: FDA-Public Use
  Company Number: DE-BRISTOL-MYERS SQUIBB COMPANY-19411339

PATIENT
  Age: 39 Year
  Sex: Male
  Weight: 90 kg

DRUGS (1)
  1. ABILIFY TABS 5 MG [Suspect]
     Indication: SCHIZOAFFECTIVE DISORDER
     Dosage: 10 MG
     Dates: start: 2003

REACTIONS (1)
  - Pathological gambling [Not Recovered/Not Resolved]
